FAERS Safety Report 11725346 (Version 1)
Quarter: 2015Q4

REPORT INFORMATION
  Report Type: Spontaneous
  Country: US (occurrence: US)
  Receive Date: 20151110
  Receipt Date: 20151110
  Transmission Date: 20160304
  Serious: No
  Sender: FDA-Public Use
  Company Number: US-ELI_LILLY_AND_COMPANY-US201109007640

PATIENT
  Age: 86 Year
  Sex: Female

DRUGS (1)
  1. FORTEO [Suspect]
     Active Substance: TERIPARATIDE
     Indication: OSTEOPOROSIS
     Dosage: 20 UG, QD
     Route: 065

REACTIONS (9)
  - Movement disorder [Unknown]
  - Back pain [Not Recovered/Not Resolved]
  - Malaise [Unknown]
  - Fall [Unknown]
  - Chest injury [Unknown]
  - Joint injury [Unknown]
  - Traumatic lung injury [Unknown]
  - Pain [Not Recovered/Not Resolved]
  - Drug dose omission [Unknown]

NARRATIVE: CASE EVENT DATE: 20110922
